FAERS Safety Report 6959507-5 (Version None)
Quarter: 2010Q3

REPORT INFORMATION
  Report Type: 
  Country: None (occurrence: None)
  Receive Date: 20100831
  Receipt Date: 20100827
  Transmission Date: 20110219
  Serious: Yes (Hospitalization, Other)
  Sender: FDA-Public Use
  Company Number: IT-BRISTOL-MYERS SQUIBB COMPANY-15252661

PATIENT
  Age: 62 Year
  Sex: Male

DRUGS (10)
  1. COUMADIN [Suspect]
     Indication: ATRIAL FIBRILLATION
     Dosage: INTERRUPTED ON 26-JUL-2010
     Dates: start: 20070701
  2. ALLOPURINOL [Concomitant]
  3. CARVEDILOL [Concomitant]
  4. CORTISONE ACETATE [Concomitant]
     Dosage: TABS
     Route: 048
  5. RANITIDINE [Concomitant]
  6. LASIX [Concomitant]
     Dosage: 25 MG ORAL TABS (DOSAGE=50MG)
     Route: 048
  7. ENAPREN [Concomitant]
     Dosage: TABS
     Route: 048
  8. NOVONORM [Concomitant]
     Dosage: TABS
     Route: 048
  9. ESKIM [Concomitant]
     Dosage: SOFT ORAL CAPS
  10. CRESTOR [Concomitant]
     Dosage: FILM COATED ORAL TABS

REACTIONS (2)
  - HAEMATOMA [None]
  - INJURY [None]
